FAERS Safety Report 12615715 (Version 2)
Quarter: 2017Q1

REPORT INFORMATION
  Report Type: Spontaneous
  Country: US (occurrence: US)
  Receive Date: 20160802
  Receipt Date: 20170202
  Transmission Date: 20170428
  Serious: No
  Sender: FDA-Public Use
  Company Number: US-IMPAX LABORATORIES, INC-2016-IPXL-00695

PATIENT
  Age: 87 Year
  Sex: Female
  Weight: 51 kg

DRUGS (9)
  1. ZOLOFT [Concomitant]
     Active Substance: SERTRALINE HYDROCHLORIDE
     Indication: PRODUCT USED FOR UNKNOWN INDICATION
     Dosage: 100 MG, BEDTIME
     Route: 065
  2. CLARITIN [Concomitant]
     Active Substance: LORATADINE
     Indication: PRODUCT USED FOR UNKNOWN INDICATION
     Dosage: UNK
     Route: 065
  3. RYTARY [Suspect]
     Active Substance: CARBIDOPA\LEVODOPA
     Indication: PARKINSON^S DISEASE
     Dosage: 48.75/195 MG CAPSULES; 3 IN MORNING, FOLLOWED BY 3, THEN 3, THEN 2, THEN 3; EVERY 3 TO 4 HRS PER DAY
     Route: 048
     Dates: start: 2015
  4. SINEMET ER [Concomitant]
     Indication: PARKINSON^S DISEASE
     Dosage: 50/200 MG AT BEDTIME
     Route: 065
  5. VITAMIN D3 [Concomitant]
     Active Substance: CHOLECALCIFEROL
     Indication: PRODUCT USED FOR UNKNOWN INDICATION
     Dosage: UNK
     Route: 065
  6. NEUPRO [Concomitant]
     Active Substance: ROTIGOTINE
     Indication: PARKINSON^S DISEASE
     Dosage: 6 MG, 1 /DAY
     Route: 065
  7. MULTIPLE VITAMINS [Concomitant]
     Active Substance: VITAMINS
     Indication: VITAMIN SUPPLEMENTATION
     Dosage: UNK
     Route: 065
  8. TYLENOL [Concomitant]
     Active Substance: ACETAMINOPHEN
     Indication: PAIN
     Dosage: UNK, PRN
     Route: 065
  9. XANAX [Concomitant]
     Active Substance: ALPRAZOLAM
     Indication: PRODUCT USED FOR UNKNOWN INDICATION
     Dosage: 0.25 MG, 2 /DAY
     Route: 065
     Dates: start: 2014

REACTIONS (9)
  - Hallucination [Not Recovered/Not Resolved]
  - Fall [Not Recovered/Not Resolved]
  - Rash pruritic [Not Recovered/Not Resolved]
  - Hypersomnia [Not Recovered/Not Resolved]
  - Head discomfort [Not Recovered/Not Resolved]
  - Dry mouth [Not Recovered/Not Resolved]
  - Dry skin [Unknown]
  - Urinary tract infection [Recovered/Resolved]
  - Drug effect decreased [Unknown]

NARRATIVE: CASE EVENT DATE: 2016
